FAERS Safety Report 7963864-0 (Version None)
Quarter: 2011Q4

REPORT INFORMATION
  Report Type: 
  Country: None (occurrence: None)
  Receive Date: 20111208
  Receipt Date: 20111126
  Transmission Date: 20120403
  Serious: Yes (Hospitalization)
  Sender: FDA-Public Use
  Company Number: US-BAYER-201034939NA

PATIENT
  Age: 23 Year
  Sex: Female
  Weight: 141 kg

DRUGS (10)
  1. YASMIN [Suspect]
     Dosage: UNK
     Dates: start: 20030101, end: 20060101
  2. DROSPIRENONE AND ETHINYL ESTRADIOL [Suspect]
     Dosage: UNK
     Dates: start: 20030101, end: 20060101
  3. PSEUDOEPHEDRINE HCL [Concomitant]
     Dosage: UNK UNK, PRN
  4. CLARITIN-D [Concomitant]
     Dosage: UNK UNK, QD
     Route: 048
  5. UNCODEABLE ^UNCLASSIFIABLE^ [Concomitant]
  6. INDERAL [Concomitant]
     Dosage: 120 MG, QD
     Route: 048
  7. METFORMIN HCL [Concomitant]
     Dosage: 1 MG, BID
     Route: 048
  8. ALTACE [Concomitant]
     Dosage: 10 MG, QD
     Route: 048
  9. PHENERGAN [Concomitant]
  10. YAZ [Suspect]
     Dosage: UNK
     Dates: start: 20030101, end: 20060101

REACTIONS (5)
  - GALLBLADDER DISORDER [None]
  - BLOOD CHOLESTEROL INCREASED [None]
  - CHEST PAIN [None]
  - CHOLECYSTITIS ACUTE [None]
  - HYPERTENSION [None]
